FAERS Safety Report 9080651 (Version 2)
Quarter: 2013Q3

REPORT INFORMATION
  Report Type: Spontaneous
  Country: US (occurrence: US)
  Receive Date: 20130218
  Receipt Date: 20130801
  Transmission Date: 20140515
  Serious: No
  Sender: FDA-Public Use
  Company Number: US-PFIZER INC-2013055212

PATIENT
  Age: 45 Year
  Sex: Female
  Weight: 97 kg

DRUGS (11)
  1. LYRICA [Suspect]
     Indication: FIBROMYALGIA
     Dosage: 150 MG, 3X/DAY
     Route: 048
     Dates: start: 201002
  2. METFORMIN [Concomitant]
     Indication: DIABETES MELLITUS
     Dosage: 500 MG, 2X/DAY
     Route: 048
  3. DIOVAN HCT [Concomitant]
     Indication: BLOOD PRESSURE ABNORMAL
     Dosage: 320/12.5MG, DAILY
  4. CLONIDINE [Concomitant]
     Dosage: 0.2 MG, 2X/DAY
     Route: 048
  5. CLONIDINE [Concomitant]
     Dosage: 0.1 MG, 2X/DAY
     Route: 048
  6. METHADONE [Concomitant]
     Dosage: 150 MG, 3X/DAY
     Route: 048
  7. MOBIC [Concomitant]
     Dosage: 15 MG, 1X/DAY
     Route: 048
  8. TIZANIDINE [Concomitant]
     Dosage: 4 MG, 2X/DAY
     Route: 048
  9. CYMBALTA [Concomitant]
     Dosage: 60 MG, 1X/DAY
  10. HYDRALAZINE [Concomitant]
     Dosage: 50 MG, 2X/DAY
     Route: 048
  11. METOPROLOL SUCCINATE [Concomitant]

REACTIONS (1)
  - Pain [Not Recovered/Not Resolved]
